FAERS Safety Report 21735782 (Version 2)
Quarter: 2022Q4

REPORT INFORMATION
  Report Type: Report from Study
  Country: US (occurrence: US)
  Receive Date: 20221215
  Receipt Date: 20221219
  Transmission Date: 20230112
  Serious: Yes (Hospitalization)
  Sender: FDA-Public Use
  Company Number: US-PFIZER INC-PV202200121966

PATIENT
  Age: 57 Year
  Sex: Female
  Weight: 66.3 kg

DRUGS (3)
  1. PALBOCICLIB [Suspect]
     Active Substance: PALBOCICLIB
     Indication: Breast cancer metastatic
     Dosage: 100 MG, DAILY
     Route: 048
     Dates: start: 20220128, end: 20221205
  2. FASLODEX [Suspect]
     Active Substance: FULVESTRANT
     Indication: Breast cancer metastatic
     Dosage: 500 MG, CYCLIC, Q28 DAYS
     Route: 030
     Dates: start: 20220128
  3. ALBUTEROL NUBULIZER [Concomitant]
     Indication: Chronic obstructive pulmonary disease
     Dosage: UNK
     Dates: start: 20221109

REACTIONS (1)
  - Hypoxia [Unknown]

NARRATIVE: CASE EVENT DATE: 20221206
